FAERS Safety Report 8388461 (Version 2)
Quarter: 2013Q1

REPORT INFORMATION
  Report Type: Spontaneous
  Country: US (occurrence: US)
  Receive Date: 20120203
  Receipt Date: 20130228
  Transmission Date: 20140127
  Serious: No
  Sender: FDA-Public Use
  Company Number: US-GLAXOSMITHKLINE-A0953740A

PATIENT
  Age: 60 Year
  Sex: Female
  Weight: 45.5 kg

DRUGS (5)
  1. LAMICTAL [Suspect]
     Indication: BIPOLAR DISORDER
     Route: 048
     Dates: start: 201109, end: 20111117
  2. LAMICTAL [Suspect]
     Route: 065
  3. CRESTOR [Concomitant]
  4. ASPIRIN [Concomitant]
  5. LEXAPRO [Concomitant]

REACTIONS (2)
  - Vaginal infection [Recovered/Resolved]
  - Rash [Unknown]
